FAERS Safety Report 24146538 (Version 2)
Quarter: 2024Q3

REPORT INFORMATION
  Report Type: Report from Study
  Country: US (occurrence: US)
  Receive Date: 20240729
  Receipt Date: 20240802
  Transmission Date: 20241016
  Serious: Yes (Hospitalization, Other)
  Sender: ACCORD
  Company Number: US-Accord-437506

PATIENT
  Age: 59 Year
  Sex: Female

DRUGS (1)
  1. CLOZAPINE [Suspect]
     Active Substance: CLOZAPINE
     Indication: Product used for unknown indication
     Dosage: 200MG AND 75 MG AT NIGHT

REACTIONS (2)
  - Neutrophilia [Unknown]
  - Sepsis [Unknown]

NARRATIVE: CASE EVENT DATE: 20240716
